FAERS Safety Report 12475014 (Version 2)
Quarter: 2017Q3

REPORT INFORMATION
  Report Type: Spontaneous
  Country: PL (occurrence: PL)
  Receive Date: 20160617
  Receipt Date: 20170728
  Transmission Date: 20171127
  Serious: Yes (Death, Hospitalization, Other)
  Sender: FDA-Public Use
  Company Number: PL-SUN PHARMACEUTICAL INDUSTRIES LTD-2016R1-118453

PATIENT
  Age: 36 Year
  Sex: Female

DRUGS (9)
  1. DOXORUBICIN [Suspect]
     Active Substance: DOXORUBICIN
     Indication: SOLID PSEUDOPAPILLARY TUMOUR OF THE PANCREAS
     Dosage: 30 MG/M^2
  2. FLUOROURACIL. [Suspect]
     Active Substance: FLUOROURACIL
     Indication: SOLID PSEUDOPAPILLARY TUMOUR OF THE PANCREAS
     Dosage: 400MG/M^2
     Route: 042
     Dates: start: 201211
  3. LEUCOVORIN. [Suspect]
     Active Substance: LEUCOVORIN
     Indication: SOLID PSEUDOPAPILLARY TUMOUR OF THE PANCREAS
     Dosage: 200MG/M^2
     Route: 042
     Dates: start: 201211
  4. FLUOROURACIL. [Suspect]
     Active Substance: FLUOROURACIL
     Dosage: 600MG/M^2
     Route: 042
     Dates: start: 201211, end: 201403
  5. OXALIPLATIN. [Suspect]
     Active Substance: OXALIPLATIN
     Indication: SOLID PSEUDOPAPILLARY TUMOUR OF THE PANCREAS
     Dosage: 85 MG/M^2
     Route: 042
     Dates: start: 201211, end: 201403
  6. IRINOTECAN [Suspect]
     Active Substance: IRINOTECAN
     Indication: SOLID PSEUDOPAPILLARY TUMOUR OF THE PANCREAS
     Dosage: 180MG/M^2
     Route: 042
  7. MITOMYCIN C [Suspect]
     Active Substance: MITOMYCIN
     Indication: SOLID PSEUDOPAPILLARY TUMOUR OF THE PANCREAS
     Dosage: 8 MG/M^2
  8. GEMCITABINE [Suspect]
     Active Substance: GEMCITABINE\GEMCITABINE HYDROCHLORIDE
     Indication: SOLID PSEUDOPAPILLARY TUMOUR OF THE PANCREAS
  9. FLUOROURACIL. [Suspect]
     Active Substance: FLUOROURACIL
     Dosage: 800MG/M^2
     Route: 042
     Dates: start: 201211, end: 201403

REACTIONS (2)
  - Therapeutic response decreased [Unknown]
  - Disease progression [Unknown]
